FAERS Safety Report 19889307 (Version 3)
Quarter: 2021Q4

REPORT INFORMATION
  Report Type: Spontaneous
  Country: US (occurrence: US)
  Receive Date: 20210928
  Receipt Date: 20211108
  Transmission Date: 20220303
  Serious: No
  Sender: FDA-Public Use
  Company Number: US-ORGANON-O2109USA001876

PATIENT
  Age: 18 Year
  Sex: Female
  Weight: 76.19 kg

DRUGS (2)
  1. NEXPLANON [Suspect]
     Active Substance: ETONOGESTREL
     Indication: Contraception
     Dosage: 1 IMPLANT IN LEFT ARM
     Route: 059
     Dates: start: 20171031, end: 20200909
  2. NEXPLANON [Suspect]
     Active Substance: ETONOGESTREL
     Dosage: 1 IMPLANT ONCE (STRENGTH 69 MILLIGRAM) IN RIGHT ARM
     Dates: start: 20210827

REACTIONS (6)
  - Implant site pruritus [Unknown]
  - Implant site urticaria [Unknown]
  - Implant site pruritus [Not Recovered/Not Resolved]
  - Implant site urticaria [Not Recovered/Not Resolved]
  - Weight increased [Unknown]
  - Device placement issue [Not Recovered/Not Resolved]

NARRATIVE: CASE EVENT DATE: 20170914
